FAERS Safety Report 7304280-4 (Version None)
Quarter: 2011Q1

REPORT INFORMATION
  Report Type: 
  Country: None (occurrence: None)
  Receive Date: 20110221
  Receipt Date: 20110208
  Transmission Date: 20110831
  Serious: Yes (Other)
  Sender: FDA-Public Use
  Company Number: US-BAYER-2011-014301

PATIENT
  Sex: Female

DRUGS (4)
  1. VICODIN [Concomitant]
     Dosage: 5 MG, PRN
     Route: 048
  2. TOPAMAX [Concomitant]
  3. INTERFERON BETA-1B [Suspect]
     Indication: RELAPSING-REMITTING MULTIPLE SCLEROSIS
     Dosage: 6 MIU, QOD
     Route: 058
     Dates: start: 20110104
  4. NEURONTIN [Concomitant]

REACTIONS (3)
  - VOMITING [None]
  - ABNORMAL LOSS OF WEIGHT [None]
  - GAIT DISTURBANCE [None]
